FAERS Safety Report 5687165-9 (Version None)
Quarter: 2008Q1

REPORT INFORMATION
  Report Type: 
  Country: None (occurrence: None)
  Receive Date: 20080328
  Receipt Date: 20070404
  Transmission Date: 20080703
  Serious: Yes (Hospitalization)
  Sender: FDA-Public Use
  Company Number: US-BAYER-US-2007-011913

PATIENT
  Age: 20 Year
  Sex: Female

DRUGS (7)
  1. SOTALOL [Suspect]
     Indication: ATRIAL FLUTTER
     Dosage: UNIT DOSE: 80 MG
     Route: 048
  2. ESMOLOL HCL [Suspect]
     Indication: ATRIAL FLUTTER
     Route: 042
  3. IBUTILIDE [Suspect]
     Indication: ATRIAL FLUTTER
     Dosage: UNIT DOSE: 1 MG
     Route: 042
  4. PROPRANOLOL [Suspect]
     Indication: ATRIAL FLUTTER
     Route: 040
  5. VITAMIN TAB [Concomitant]
  6. CALCIUM [Concomitant]
     Indication: HYPOCALCAEMIA
  7. HEPARIN [Concomitant]
     Indication: ATRIAL FLUTTER
     Route: 041

REACTIONS (3)
  - DRUG INEFFECTIVE [None]
  - ELECTROCARDIOGRAM QT PROLONGED [None]
  - HYPOTENSION [None]
